APPROVED DRUG PRODUCT: PINDOLOL
Active Ingredient: PINDOLOL
Strength: 5MG
Dosage Form/Route: TABLET;ORAL
Application: A073687 | Product #001
Applicant: COSETTE PHARMACEUTICALS INC
Approved: Feb 26, 1993 | RLD: No | RS: No | Type: DISCN